FAERS Safety Report 9192732 (Version 1)
Quarter: 2013Q1

REPORT INFORMATION
  Report Type: Spontaneous
  Country: US (occurrence: None)
  Receive Date: 20130325
  Receipt Date: 20130325
  Transmission Date: 20140127
  Serious: Yes (Hospitalization)
  Sender: FDA-Public Use
  Company Number: None

PATIENT
  Sex: Male
  Weight: 67.2 kg

DRUGS (4)
  1. ALEMTUZUMAB (CAMPATH) [Suspect]
  2. CYCLOPHOSPHAMIDE [Suspect]
  3. PENTOSTATIN [Suspect]
  4. RITUXIMAB (MOAB C2B8 ANTI CD20, CHIMERIC) [Suspect]

REACTIONS (2)
  - Febrile neutropenia [None]
  - Lung infection [None]
